FAERS Safety Report 19126238 (Version 1)
Quarter: 2021Q2

REPORT INFORMATION
  Report Type: Spontaneous
  Country: IN (occurrence: IN)
  Receive Date: 20210412
  Receipt Date: 20210412
  Transmission Date: 20210717
  Serious: Yes (Death)
  Sender: FDA-Public Use
  Company Number: IN-PFIZER INC-2020124748

PATIENT
  Age: 50 Year
  Sex: Female

DRUGS (10)
  1. PALBACE [Suspect]
     Active Substance: PALBOCICLIB
     Indication: BREAST CANCER METASTATIC
     Dosage: 125 MG, CYCLIC (ONCE A DAY, 21 DAYS ON, 7 DAYS OFF)
     Route: 048
     Dates: start: 20190507, end: 20210104
  2. URSOCOL [Concomitant]
     Dosage: 450 MG, 2X/DAY
     Route: 048
  3. ZOLDRIA [Concomitant]
     Active Substance: ZOLEDRONIC ACID
     Dosage: 4 MG, EVERY 3 MONTHS
     Route: 042
  4. LETROZ [Concomitant]
     Dosage: 2.5 MG, 1X/DAY
     Route: 048
  5. BECOSULES?Z [Concomitant]
     Dosage: UNK, 1X/DAY
     Route: 048
  6. PANTOCID DSR [Concomitant]
     Dosage: SOS
     Route: 048
  7. EVION [Concomitant]
     Active Substance: .ALPHA.-TOCOPHEROL ACETATE
     Dosage: 400 MG, 2X/DAY
     Route: 048
  8. SHELCAL HD [Concomitant]
     Active Substance: CALCIUM CARBONATE\CHOLECALCIFEROL
     Dosage: UNK, 1X/DAY
     Route: 048
  9. SHELCAL HD [Concomitant]
     Active Substance: CALCIUM CARBONATE\CHOLECALCIFEROL
     Dosage: 500 MG 0?0
  10. ZOLADEX [Concomitant]
     Active Substance: GOSERELIN ACETATE
     Dosage: 3.6 MG

REACTIONS (5)
  - Thyroid mass [Unknown]
  - Alanine aminotransferase increased [Recovered/Resolved]
  - Aspartate aminotransferase increased [Unknown]
  - Death [Fatal]
  - Platelet count decreased [Recovered/Resolved]

NARRATIVE: CASE EVENT DATE: 201908
